FAERS Safety Report 4684917-9 (Version None)
Quarter: 2005Q2

REPORT INFORMATION
  Report Type: 
  Country: None (occurrence: None)
  Receive Date: 20050606
  Receipt Date: 20050606
  Transmission Date: 20051028
  Serious: Yes (Life-Threatening, Hospitalization)
  Sender: FDA-Public Use
  Company Number: None

PATIENT
  Age: 63 Year
  Sex: Female
  Weight: 87.0906 kg

DRUGS (2)
  1. NEURONTIN [Suspect]
     Indication: ATTENTION DEFICIT/HYPERACTIVITY DISORDER
     Dosage: 1 A DAY
  2. NEURONTIN [Suspect]
     Indication: PAIN
     Dosage: 1 A DAY

REACTIONS (2)
  - AMNESIA [None]
  - SUICIDE ATTEMPT [None]
